FAERS Safety Report 8366578-0 (Version None)
Quarter: 2012Q1

REPORT INFORMATION
  Report Type: 
  Country: None (occurrence: None)
  Receive Date: 20120323
  Receipt Date: 20110411
  Transmission Date: 20120608
  Serious: Yes (Hospitalization, Other)
  Sender: FDA-Public Use
  Company Number: 163-21880-11041173

PATIENT
  Age: 85 Year
  Sex: Male
  Weight: 73.4827 kg

DRUGS (6)
  1. RAMIPRIL [Concomitant]
  2. CHOLESTYRAM(COLESTYRAMINE)(UNKNOWN) [Concomitant]
  3. COREG(CARVEDILOL)(UNKNOWN) [Concomitant]
  4. IMODIUM(LOPERAMIDE HYDROCHLORIDE)(UNKNOWN) [Concomitant]
  5. LIPITOR [Concomitant]
  6. REVLIMID [Suspect]
     Indication: MYELODYSPLASTIC SYNDROME
     Dosage: 10 MG, 1 IN 1 D, PO
     Route: 048
     Dates: start: 20080101

REACTIONS (1)
  - CHOLECYSTITIS INFECTIVE [None]
